FAERS Safety Report 4947779-8 (Version None)
Quarter: 2006Q1

REPORT INFORMATION
  Report Type: 
  Country: None (occurrence: None)
  Receive Date: 20060317
  Receipt Date: 20060317
  Transmission Date: 20060701
  Serious: Yes (Hospitalization, Other)
  Sender: FDA-Public Use
  Company Number: None

PATIENT
  Sex: Female
  Weight: 51.3 kg

DRUGS (1)
  1. ERBITUX [Suspect]
     Indication: COLON CANCER
     Dosage: 648 MG
     Dates: start: 20060314, end: 20060314

REACTIONS (6)
  - DYSPNOEA [None]
  - HYPERSENSITIVITY [None]
  - HYPOTENSION [None]
  - PNEUMOTHORAX [None]
  - SWELLING [None]
  - URTICARIA [None]
